FAERS Safety Report 12968615 (Version 1)
Quarter: 2016Q4

REPORT INFORMATION
  Report Type: Spontaneous
  Country: US (occurrence: US)
  Receive Date: 20161121
  Receipt Date: 20161121
  Transmission Date: 20170207
  Serious: No
  Sender: FDA-Public Use
  Company Number: None

PATIENT
  Age: 49 Year
  Sex: Female

DRUGS (4)
  1. TOLTERODINE [Concomitant]
     Active Substance: TOLTERODINE
  2. TRIAMCINOLON [Concomitant]
  3. DIPHENHYDRAM [Concomitant]
  4. VIVITROL [Suspect]
     Active Substance: NALTREXONE
     Indication: ALCOHOL USE
     Route: 030
     Dates: start: 20161006

REACTIONS (2)
  - Eczema [None]
  - Injection site reaction [None]

NARRATIVE: CASE EVENT DATE: 20161018
